FAERS Safety Report 15836077 (Version 1)
Quarter: 2019Q1

REPORT INFORMATION
  Report Type: Report from Study
  Country: US (occurrence: US)
  Receive Date: 20190117
  Receipt Date: 20190117
  Transmission Date: 20190417
  Serious: Yes (Hospitalization, Other)
  Sender: FDA-Public Use
  Company Number: US-SA-2019SA010582

PATIENT
  Age: 51 Year
  Sex: Female

DRUGS (4)
  1. INSULIN GLARGINE [Suspect]
     Active Substance: INSULIN GLARGINE
     Indication: TYPE 1 DIABETES MELLITUS
     Dosage: 13-20U, QD
  2. INSULIN GLARGINE [Suspect]
     Active Substance: INSULIN GLARGINE
     Dosage: 27 U, QD
     Route: 058
  3. INSULIN GLARGINE [Suspect]
     Active Substance: INSULIN GLARGINE
     Dosage: UNK (DOSING UNKNOWN WITH LANTUS SOLOSTAR)
  4. INSULIN GLARGINE [Suspect]
     Active Substance: INSULIN GLARGINE
     Dosage: UNK (DOSING UNKNOWN WHEN BACK TO LANTUS)

REACTIONS (15)
  - Skin infection [Recovered/Resolved]
  - Somnolence [Recovered/Resolved]
  - Medical device discomfort [Recovered/Resolved]
  - Blood pressure increased [Recovered/Resolved]
  - Infection [Recovered/Resolved]
  - Micturition disorder [Recovered/Resolved]
  - Asthma [Recovered/Resolved]
  - Loss of consciousness [Recovered/Resolved]
  - Gastrointestinal motility disorder [Recovered/Resolved]
  - Blood glucose increased [Recovered/Resolved]
  - Intentional product use issue [Unknown]
  - Coeliac disease [Not Recovered/Not Resolved]
  - Gait inability [Recovered/Resolved]
  - Product dose omission [Unknown]
  - Therapeutic response decreased [Unknown]

NARRATIVE: CASE EVENT DATE: 201803
